FAERS Safety Report 14835513 (Version 4)
Quarter: 2019Q3

REPORT INFORMATION
  Report Type: Report from Study
  Country: AU (occurrence: AU)
  Receive Date: 20180502
  Receipt Date: 20190826
  Transmission Date: 20191004
  Serious: Yes (Other)
  Sender: FDA-Public Use
  Company Number: AU-BIOGEN-2017BI00428810

PATIENT
  Age: 53 Year
  Sex: Female

DRUGS (5)
  1. LYRICA [Suspect]
     Active Substance: PREGABALIN
     Dosage: MORNING
     Route: 050
  2. TYSABRI [Suspect]
     Active Substance: NATALIZUMAB
     Indication: MULTIPLE SCLEROSIS
     Dosage: INFUSED OVER ONE HOUR
     Route: 050
     Dates: start: 20140601
  3. LYRICA [Suspect]
     Active Substance: PREGABALIN
     Dosage: NIGHT
     Route: 050
  4. TYSABRI [Suspect]
     Active Substance: NATALIZUMAB
     Dosage: INFUSED OVER ONE HOUR
     Route: 050
     Dates: start: 20140701
  5. LYRICA [Suspect]
     Active Substance: PREGABALIN
     Indication: COUGH
     Route: 050

REACTIONS (14)
  - Multiple sclerosis [Not Recovered/Not Resolved]
  - Nuclear magnetic resonance imaging brain abnormal [Unknown]
  - Lymphadenopathy [Not Recovered/Not Resolved]
  - Cough [Not Recovered/Not Resolved]
  - Social avoidant behaviour [Unknown]
  - Fatigue [Not Recovered/Not Resolved]
  - Prescribed underdose [Not Recovered/Not Resolved]
  - Feeling abnormal [Not Recovered/Not Resolved]
  - Basal cell carcinoma [Unknown]
  - Squamous cell carcinoma of skin [Unknown]
  - Therapeutic response shortened [Unknown]
  - Memory impairment [Not Recovered/Not Resolved]
  - Anxiety [Unknown]
  - Asthenia [Unknown]

NARRATIVE: CASE EVENT DATE: 2016
